FAERS Safety Report 7123751-7 (Version None)
Quarter: 2010Q4

REPORT INFORMATION
  Report Type: 
  Country: None (occurrence: None)
  Receive Date: 20101125
  Receipt Date: 20101112
  Transmission Date: 20110411
  Serious: Yes (Other)
  Sender: FDA-Public Use
  Company Number: PHHY2010US77331

PATIENT
  Sex: Female

DRUGS (2)
  1. GLEEVEC [Suspect]
     Indication: SKIN CANCER
     Dosage: 400 MG, QD
     Route: 048
     Dates: end: 20100915
  2. GLEEVEC [Suspect]
     Indication: LIP NEOPLASM MALIGNANT STAGE UNSPECIFIED

REACTIONS (1)
  - TUMOUR EXCISION [None]
